FAERS Safety Report 6482458-X (Version None)
Quarter: 2009Q4

REPORT INFORMATION
  Report Type: 
  Country: None (occurrence: None)
  Receive Date: 20091208
  Receipt Date: 20091022
  Transmission Date: 20100525
  Serious: No
  Sender: FDA-Public Use
  Company Number: US-AMGEN-TCS366341

PATIENT
  Sex: Male
  Weight: 73.1 kg

DRUGS (7)
  1. ENBREL [Suspect]
     Indication: PSORIATIC ARTHROPATHY
     Route: 058
     Dates: start: 20090529, end: 20091019
  2. ENBREL [Suspect]
     Indication: PSORIASIS
  3. METHOTREXATE [Suspect]
     Dates: start: 20090529, end: 20090729
  4. CYMBALTA [Concomitant]
  5. NAPROSYN [Concomitant]
  6. ZYRTEC [Concomitant]
  7. PEPCID [Concomitant]

REACTIONS (3)
  - ALANINE AMINOTRANSFERASE INCREASED [None]
  - DRUG INEFFECTIVE [None]
  - HEPATIC PAIN [None]
